FAERS Safety Report 6391448-7 (Version None)
Quarter: 2009Q4

REPORT INFORMATION
  Report Type: 
  Country: None (occurrence: None)
  Receive Date: 20091006
  Receipt Date: 20091006
  Transmission Date: 20100525
  Serious: No
  Sender: FDA-Public Use
  Company Number: None

PATIENT
  Age: 29 Year
  Sex: Female
  Weight: 49.8957 kg

DRUGS (1)
  1. LAMOTRIGINE [Suspect]
     Indication: BIPOLAR DISORDER
     Dosage: 200MG 3X/DAY PO
     Route: 048
     Dates: start: 20090919, end: 20091005

REACTIONS (16)
  - ANHEDONIA [None]
  - ANXIETY [None]
  - COMMUNICATION DISORDER [None]
  - DEPRESSED MOOD [None]
  - FATIGUE [None]
  - FEAR [None]
  - FEELING ABNORMAL [None]
  - HEADACHE [None]
  - IRRITABILITY [None]
  - MOOD SWINGS [None]
  - PAIN [None]
  - PRODUCT SUBSTITUTION ISSUE [None]
  - SPEECH DISORDER [None]
  - THINKING ABNORMAL [None]
  - TINNITUS [None]
  - VISION BLURRED [None]
